FAERS Safety Report 6412177-7 (Version None)
Quarter: 2009Q4

REPORT INFORMATION
  Report Type: 
  Country: None (occurrence: None)
  Receive Date: 20091023
  Receipt Date: 20091019
  Transmission Date: 20100525
  Serious: Yes (Other)
  Sender: FDA-Public Use
  Company Number: A0812217A

PATIENT
  Sex: Female

DRUGS (2)
  1. FLU VACCINE [Suspect]
     Route: 065
     Dates: start: 20091015, end: 20091015
  2. TREXIMET [Suspect]
     Indication: MIGRAINE
     Route: 048
     Dates: start: 20091001, end: 20091001

REACTIONS (3)
  - DIZZINESS [None]
  - DRUG EFFECT DECREASED [None]
  - GAIT DISTURBANCE [None]
